FAERS Safety Report 6928894-6 (Version None)
Quarter: 2010Q3

REPORT INFORMATION
  Report Type: 
  Country: None (occurrence: None)
  Receive Date: 20100817
  Receipt Date: 20100812
  Transmission Date: 20110219
  Serious: Yes (Life-Threatening)
  Sender: FDA-Public Use
  Company Number: FR-ASTRAZENECA-2010SE38060

PATIENT
  Age: 20753 Day
  Sex: Female

DRUGS (4)
  1. NEXIUM [Suspect]
     Route: 048
     Dates: start: 20091102, end: 20091112
  2. BI-PROFENID [Suspect]
     Indication: MUSCULOSKELETAL PAIN
     Route: 048
     Dates: start: 20091102, end: 20091112
  3. TOPALGIC [Suspect]
     Indication: MUSCULOSKELETAL PAIN
     Route: 048
     Dates: start: 20091102, end: 20091112
  4. TRANSIPEG [Suspect]
     Indication: CONSTIPATION
     Route: 048
     Dates: start: 20091112, end: 20091112

REACTIONS (3)
  - ANAPHYLACTIC SHOCK [None]
  - HYPOTENSION [None]
  - URTICARIA [None]
